FAERS Safety Report 7153539-2 (Version None)
Quarter: 2010Q4

REPORT INFORMATION
  Report Type: 
  Country: None (occurrence: None)
  Receive Date: 20101213
  Receipt Date: 20101202
  Transmission Date: 20110411
  Serious: Yes (Other)
  Sender: FDA-Public Use
  Company Number: GXKR2010PL13209

PATIENT
  Sex: Female
  Weight: 55 kg

DRUGS (15)
  1. LEVODOPA+CARBIDOPA (NGX) [Suspect]
     Indication: PARKINSONISM
     Dosage: 1 DF/DAY
     Route: 048
     Dates: start: 20100531, end: 20100619
  2. LEVODOPA+CARBIDOPA (NGX) [Suspect]
     Dosage: 2 DF/DAY
     Route: 048
     Dates: start: 20100620, end: 20100820
  3. LEVODOPA+CARBIDOPA (NGX) [Suspect]
     Dosage: 3 DF/DAY
     Route: 048
     Dates: start: 20100821, end: 20100903
  4. LEVODOPA+CARBIDOPA (NGX) [Suspect]
     Dosage: 2 DF/DAY
     Route: 048
     Dates: start: 20100904, end: 20100905
  5. LEVODOPA+CARBIDOPA (NGX) [Suspect]
     Dosage: 1 DF/DAY
     Route: 048
     Dates: start: 20100906, end: 20100907
  6. EXELON [Concomitant]
     Dosage: 4,5 MG/DAY
     Route: 065
  7. FUROSEMIDE [Concomitant]
     Dosage: 40 MG/DAY
     Route: 065
  8. RAMIPRIL [Concomitant]
     Dosage: 2,5 MG/DAY
  9. CONCOR [Concomitant]
     Dosage: 5 MG/DAY
     Route: 065
  10. MONONIT [Concomitant]
     Dosage: 40 MG/DAY
     Route: 065
  11. COENZYME Q10 [Concomitant]
     Dosage: + LECITHIN 30 MG/DAY
     Route: 065
  12. THERAPEUTIC MULTIVITAMINS [Concomitant]
     Dosage: 1 TABLET/DAY
     Route: 065
  13. BIO-MARIN [Concomitant]
     Dosage: 570 MG/DAY
     Route: 065
  14. KALIPOZ [Concomitant]
     Dosage: 391 MG/DAY
     Route: 065
  15. PHOSPHATIDYL SERINE [Concomitant]
     Dosage: 300 MG/DAY
     Route: 065

REACTIONS (9)
  - APHASIA [None]
  - ERYTHEMA [None]
  - HYPERSENSITIVITY [None]
  - LETHARGY [None]
  - NEUROLOGICAL EYELID DISORDER [None]
  - OESOPHAGEAL HYPOMOTILITY [None]
  - PARALYSIS [None]
  - SOMNOLENCE [None]
  - TONGUE PARALYSIS [None]
